FAERS Safety Report 21401860 (Version 1)
Quarter: 2022Q4

REPORT INFORMATION
  Report Type: Spontaneous
  Country: CN (occurrence: CN)
  Receive Date: 20221003
  Receipt Date: 20221003
  Transmission Date: 20230113
  Serious: Yes (Hospitalization)
  Sender: FDA-Public Use
  Company Number: None

PATIENT
  Age: 46 Year
  Sex: Female

DRUGS (5)
  1. PACLITAXEL [Suspect]
     Active Substance: PACLITAXEL
     Indication: Breast cancer
     Dosage: 110 MILLIGRAM, WEEKLY, IV DRIP
     Route: 042
     Dates: start: 20220601, end: 20220620
  2. TRASTUZUMAB [Suspect]
     Active Substance: TRASTUZUMAB
     Indication: Breast cancer
     Dosage: 320 MILLIGRAM, Q3W STRENGTH: 150MG, IV DRIP
     Route: 042
     Dates: start: 20220601, end: 20220601
  3. PACLITAXEL [Suspect]
     Active Substance: PACLITAXEL
     Indication: Breast cancer
     Dosage: IV DRIP, 200 MILLIGRAM, WEEKLY
     Route: 042
     Dates: start: 20220630, end: 20220819
  4. TRASTUZUMAB [Suspect]
     Active Substance: TRASTUZUMAB
     Indication: Breast cancer
     Dosage: Q3W, STRENGTH: 150 MG, IV DRIP
     Route: 042
     Dates: start: 20220620
  5. TRASTUZUMAB [Suspect]
     Active Substance: TRASTUZUMAB
     Indication: Breast cancer
     Dosage: Q3W, STRENGTH: 150 MG, IV DRIP
     Route: 042
     Dates: start: 20220805, end: 20220805

REACTIONS (2)
  - Transaminases increased [Recovering/Resolving]
  - Hepatic function abnormal [Recovering/Resolving]

NARRATIVE: CASE EVENT DATE: 20220901
